FAERS Safety Report 6925191-X (Version None)
Quarter: 2010Q3

REPORT INFORMATION
  Report Type: 
  Country: None (occurrence: None)
  Receive Date: 20100816
  Receipt Date: 20100727
  Transmission Date: 20110219
  Serious: No
  Sender: FDA-Public Use
  Company Number: US-TEVA-244381USA

PATIENT

DRUGS (1)
  1. AZILECT [Suspect]
     Indication: PARKINSON'S DISEASE
     Dosage: DAILY
     Route: 048
     Dates: start: 20091101

REACTIONS (4)
  - BITE [None]
  - CONFUSIONAL STATE [None]
  - FATIGUE [None]
  - TUNNEL VISION [None]
